FAERS Safety Report 19628354 (Version 1)
Quarter: 2021Q3

REPORT INFORMATION
  Report Type: Spontaneous
  Country: DE (occurrence: DE)
  Receive Date: 20210728
  Receipt Date: 20210728
  Transmission Date: 20211014
  Serious: Yes (Death)
  Sender: FDA-Public Use
  Company Number: DE-ABBVIE-21K-062-4012007-00

PATIENT
  Age: 57 Year
  Sex: Female
  Weight: 75 kg

DRUGS (2)
  1. VENCLYXTO [Suspect]
     Active Substance: VENETOCLAX
     Indication: ACUTE MYELOID LEUKAEMIA
     Dosage: 100 MG, EVERY DAY 4 TABLETS
     Route: 048
     Dates: start: 20210106, end: 2021
  2. VENCLYXTO [Suspect]
     Active Substance: VENETOCLAX
     Indication: MYELODYSPLASTIC SYNDROME

REACTIONS (1)
  - Pleural effusion [Fatal]

NARRATIVE: CASE EVENT DATE: 20210426
